FAERS Safety Report 9494141 (Version 1)
Quarter: 2013Q3

REPORT INFORMATION
  Report Type: Report from Study
  Country: US (occurrence: US)
  Receive Date: 20130903
  Receipt Date: 20130903
  Transmission Date: 20140515
  Serious: Yes (Other)
  Sender: FDA-Public Use
  Company Number: PHEH2013US018248

PATIENT
  Age: 8 Year
  Sex: Female

DRUGS (4)
  1. AFINITOR [Suspect]
     Indication: TUBEROUS SCLEROSIS
     Dosage: 5 MG, DAILY
     Route: 048
     Dates: start: 20120226
  2. AFINITOR [Suspect]
     Indication: BRAIN NEOPLASM BENIGN
  3. LYSINE [Concomitant]
  4. LAMICTAL [Concomitant]

REACTIONS (3)
  - Neoplasm [Unknown]
  - Eye disorder [Unknown]
  - Electroencephalogram abnormal [Unknown]
